FAERS Safety Report 9932259 (Version 1)
Quarter: 2014Q1

REPORT INFORMATION
  Report Type: Spontaneous
  Country: US (occurrence: None)
  Receive Date: 20140227
  Receipt Date: 20140227
  Transmission Date: 20141002
  Serious: Yes (Hospitalization)
  Sender: FDA-Public Use
  Company Number: None

PATIENT
  Age: 84 Year
  Sex: Male

DRUGS (10)
  1. WARFARIN 7 MG [Suspect]
     Dates: start: 20131217, end: 20131223
  2. ASPIRIN EC [Concomitant]
  3. CHOLECALCIFEROL [Concomitant]
  4. ESOMEPRAZOLE [Concomitant]
  5. GLIPIZIDE [Concomitant]
  6. HYDROXYUREA [Concomitant]
  7. INSULIN ASPART SCALE [Concomitant]
  8. LISINOPRIL [Concomitant]
  9. METOPROLOL TARTRATE [Concomitant]
  10. TAMSULOSIN [Concomitant]

REACTIONS (3)
  - Upper gastrointestinal haemorrhage [None]
  - International normalised ratio increased [None]
  - Haemoptysis [None]
